FAERS Safety Report 16591614 (Version 1)
Quarter: 2019Q3

REPORT INFORMATION
  Report Type: Report from Study
  Country: AU (occurrence: AU)
  Receive Date: 20190718
  Receipt Date: 20190718
  Transmission Date: 20191004
  Serious: Yes (Hospitalization)
  Sender: FDA-Public Use
  Company Number: AU-MYLANLABS-2019M1066929

PATIENT
  Sex: Male
  Weight: 83 kg

DRUGS (2)
  1. ASMOL INHALER [Suspect]
     Active Substance: ALBUTEROL SULFATE
     Indication: CHRONIC OBSTRUCTIVE PULMONARY DISEASE
     Dosage: 100 MICROGRAM, 3- 4 TIMES PER DAY
  2. BRIMICA GENUAIR [Suspect]
     Active Substance: ACLIDINIUM BROMIDE\FORMOTEROL FUMARATE
     Indication: CHRONIC OBSTRUCTIVE PULMONARY DISEASE
     Dosage: 340/12, 2-3 TIMES PER DAY

REACTIONS (2)
  - Chronic obstructive pulmonary disease [Unknown]
  - Drug ineffective [Unknown]
